FAERS Safety Report 8615937-7 (Version None)
Quarter: 2012Q3

REPORT INFORMATION
  Report Type: 
  Country: None (occurrence: None)
  Receive Date: 20120823
  Receipt Date: 20120820
  Transmission Date: 20120928
  Serious: Yes (Other)
  Sender: FDA-Public Use
  Company Number: GB-GLAXOSMITHKLINE-B0823879A

PATIENT
  Age: 32 Year
  Sex: Female

DRUGS (9)
  1. PROPRANOLOL [Suspect]
     Indication: PALPITATIONS
     Dosage: 20MG PER DAY
     Route: 048
     Dates: start: 20090505
  2. OMEPRAZOLE [Suspect]
     Indication: DYSPEPSIA
     Dosage: 20MG PER DAY
     Route: 048
     Dates: start: 20080919
  3. SEROQUEL [Suspect]
     Indication: DEPRESSION
     Dosage: 400MG PER DAY
     Route: 048
     Dates: start: 20110323, end: 20110910
  4. CITALOPRAM HYDROBROMIDE [Suspect]
     Indication: DEPRESSION
     Dosage: 20MG PER DAY
     Route: 048
     Dates: start: 20111004
  5. SEROQUEL [Suspect]
     Indication: ANXIETY
     Dosage: 400MG PER DAY
     Route: 048
     Dates: start: 20110323, end: 20110910
  6. DIHYDROCODEINE BITARTRATE INJ [Suspect]
     Indication: PAIN
     Route: 048
     Dates: start: 20100315
  7. PROPRANOLOL [Suspect]
     Indication: ANXIETY
     Dosage: 20MG PER DAY
     Route: 048
     Dates: start: 20090505
  8. FLUOXETINE HCL [Suspect]
     Indication: DEPRESSION
     Dosage: 60MG PER DAY
     Route: 048
     Dates: start: 20100621, end: 20111004
  9. CHLORPROMAZINE HCL [Suspect]
     Indication: ANXIETY
     Dosage: 25MG PER DAY
     Route: 048
     Dates: start: 20110922

REACTIONS (2)
  - PRE-ECLAMPSIA [None]
  - MATERNAL EXPOSURE DURING PREGNANCY [None]
